FAERS Safety Report 5920526-9 (Version None)
Quarter: 2008Q4

REPORT INFORMATION
  Report Type: 
  Country: None (occurrence: None)
  Receive Date: 20081016
  Receipt Date: 20081014
  Transmission Date: 20090506
  Serious: Yes (Other)
  Sender: FDA-Public Use
  Company Number: D0058832A

PATIENT
  Age: 22 Year
  Sex: Female

DRUGS (2)
  1. VIANI FORTE [Suspect]
     Indication: ASTHMA
     Route: 055
     Dates: start: 20080824, end: 20080922
  2. CONTRACEPTIVE [Concomitant]
     Route: 065

REACTIONS (10)
  - ASTHMA [None]
  - COUGH [None]
  - DYSGEUSIA [None]
  - HEART RATE IRREGULAR [None]
  - HYPERVENTILATION [None]
  - INFLUENZA [None]
  - LUNG DISORDER [None]
  - NON-CARDIAC CHEST PAIN [None]
  - RESPIRATION ABNORMAL [None]
  - STOMATITIS [None]
